FAERS Safety Report 23582441 (Version 3)
Quarter: 2024Q3

REPORT INFORMATION
  Report Type: Spontaneous
  Country: US (occurrence: US)
  Receive Date: 20240229
  Receipt Date: 20240809
  Transmission Date: 20241016
  Serious: Yes (Hospitalization, Other)
  Sender: BRISTOL MYERS SQUIBB
  Company Number: US-BRISTOL-MYERS SQUIBB COMPANY-2024-032721

PATIENT
  Age: 73 Year
  Sex: Female
  Weight: 110.68 kg

DRUGS (1)
  1. REVLIMID [Suspect]
     Active Substance: LENALIDOMIDE
     Indication: Plasma cell myeloma
     Dosage: 21D ON 7D OFF
     Route: 048

REACTIONS (5)
  - Colitis [Recovering/Resolving]
  - Blood potassium decreased [Unknown]
  - Dyspnoea [Unknown]
  - Intestinal haemorrhage [Unknown]
  - Neuropathy peripheral [Unknown]
